FAERS Safety Report 16380674 (Version 1)
Quarter: 2019Q2

REPORT INFORMATION
  Report Type: Spontaneous
  Country: GB (occurrence: GB)
  Receive Date: 20190601
  Receipt Date: 20190601
  Transmission Date: 20190711
  Serious: Yes (Life-Threatening, Other)
  Sender: FDA-Public Use
  Company Number: GB-ACCORD-130387

PATIENT
  Age: 14 Year
  Sex: Female
  Weight: 45 kg

DRUGS (1)
  1. AMITRIPTYLINE [Suspect]
     Active Substance: AMITRIPTYLINE
     Indication: PAIN
     Dosage: LOW STARTER DOSE
     Route: 048

REACTIONS (3)
  - Intentional self-injury [Unknown]
  - Suicidal ideation [Recovering/Resolving]
  - Depression [Not Recovered/Not Resolved]
